FAERS Safety Report 6945827-7 (Version None)
Quarter: 2010Q3

REPORT INFORMATION
  Report Type: 
  Country: None (occurrence: None)
  Receive Date: 20100824
  Receipt Date: 20100810
  Transmission Date: 20110219
  Serious: Yes (Other)
  Sender: FDA-Public Use
  Company Number: GB-1182951

PATIENT

DRUGS (1)
  1. BSS [Suspect]
     Dosage: INTRAOCULAR
     Route: 031

REACTIONS (1)
  - FLAT ANTERIOR CHAMBER OF EYE [None]
